FAERS Safety Report 12659534 (Version 2)
Quarter: 2016Q3

REPORT INFORMATION
  Report Type: Spontaneous
  Country: US (occurrence: US)
  Receive Date: 20160817
  Receipt Date: 20160908
  Transmission Date: 20161109
  Serious: Yes (Hospitalization)
  Sender: FDA-Public Use
  Company Number: US-JNJFOC-20160807316

PATIENT
  Age: 53 Year
  Sex: Male

DRUGS (7)
  1. INVEGA SUSTENNA [Suspect]
     Active Substance: PALIPERIDONE PALMITATE
     Indication: SCHIZOAFFECTIVE DISORDER BIPOLAR TYPE
     Dosage: DELTOID
     Route: 030
     Dates: start: 20160620
  2. INVEGA SUSTENNA [Suspect]
     Active Substance: PALIPERIDONE PALMITATE
     Indication: SCHIZOAFFECTIVE DISORDER BIPOLAR TYPE
     Dosage: DELTOID
     Route: 030
     Dates: start: 20160613
  3. METOPROLOL. [Concomitant]
     Active Substance: METOPROLOL
     Indication: PRODUCT USED FOR UNKNOWN INDICATION
     Route: 065
  4. DEPAKOTE [Concomitant]
     Active Substance: DIVALPROEX SODIUM
     Indication: PRODUCT USED FOR UNKNOWN INDICATION
     Dosage: 500 AM AND 1000HS
     Route: 065
  5. ZOLPIDEM [Concomitant]
     Active Substance: ZOLPIDEM\ZOLPIDEM TARTRATE
     Indication: PRODUCT USED FOR UNKNOWN INDICATION
     Route: 065
  6. SIMVASTATIN. [Concomitant]
     Active Substance: SIMVASTATIN
     Indication: PRODUCT USED FOR UNKNOWN INDICATION
     Route: 065
  7. OLANZAPINE. [Concomitant]
     Active Substance: OLANZAPINE
     Indication: PRODUCT USED FOR UNKNOWN INDICATION
     Dosage: 40
     Route: 048

REACTIONS (5)
  - Seizure [Recovered/Resolved with Sequelae]
  - Psychotic disorder [Unknown]
  - Confusional state [Unknown]
  - Incorrect dose administered [Unknown]
  - Off label use [Unknown]

NARRATIVE: CASE EVENT DATE: 20160620
